FAERS Safety Report 13551382 (Version 1)
Quarter: 2017Q2

REPORT INFORMATION
  Report Type: Spontaneous
  Country: US (occurrence: US)
  Receive Date: 20170516
  Receipt Date: 20170516
  Transmission Date: 20170830
  Serious: No
  Sender: FDA-Public Use
  Company Number: US-MEDA-2017050068

PATIENT
  Age: 69 Year
  Sex: Male
  Weight: 79 kg

DRUGS (7)
  1. LOMOTIL [Concomitant]
     Active Substance: ATROPINE SULFATE\DIPHENOXYLATE HYDROCHLORIDE
  2. ATENOLOL. [Concomitant]
     Active Substance: ATENOLOL
     Indication: HYPERTENSION
     Dates: start: 1997
  3. ULCERIS [Concomitant]
     Indication: COLITIS
     Dates: start: 2004
  4. VIAGRA [Concomitant]
     Active Substance: SILDENAFIL CITRATE
     Indication: ERECTILE DYSFUNCTION
  5. LIALDA [Concomitant]
     Active Substance: MESALAMINE
     Indication: COLITIS
     Dates: start: 2004
  6. TERAZOSIN [Suspect]
     Active Substance: TERAZOSIN\TERAZOSIN HYDROCHLORIDE
     Indication: HYPERTENSION
     Dates: start: 1997
  7. MUSE [Suspect]
     Active Substance: ALPROSTADIL
     Indication: ERECTILE DYSFUNCTION
     Route: 066
     Dates: start: 2009

REACTIONS (3)
  - Wrong technique in product usage process [Recovered/Resolved]
  - Penile pain [Recovered/Resolved]
  - Penile burning sensation [Recovered/Resolved]

NARRATIVE: CASE EVENT DATE: 2009
